FAERS Safety Report 11645566 (Version 1)
Quarter: 2015Q4

REPORT INFORMATION
  Report Type: Spontaneous
  Country: DK (occurrence: DK)
  Receive Date: 20151020
  Receipt Date: 20151020
  Transmission Date: 20160304
  Serious: Yes (Hospitalization)
  Sender: FDA-Public Use
  Company Number: PHHY2015DK018133

PATIENT
  Age: 39 Year
  Sex: Male

DRUGS (5)
  1. CLOZAPINE. [Suspect]
     Active Substance: CLOZAPINE
     Indication: SCHIZOPHRENIA, PARANOID TYPE
     Dosage: 500 MG, QD (100 + 0 + 0 + 400 MG)
     Route: 065
  2. PREGABALIN. [Interacting]
     Active Substance: PREGABALIN
     Indication: ANXIETY
     Dosage: 75 MG, UNK
     Route: 065
  3. PREGABALIN. [Interacting]
     Active Substance: PREGABALIN
     Dosage: 525 MG, QD
     Route: 065
  4. PREGABALIN. [Interacting]
     Active Substance: PREGABALIN
     Indication: SCHIZOPHRENIA, PARANOID TYPE
     Dosage: 150 MG, QW
     Route: 065
  5. PREGABALIN. [Interacting]
     Active Substance: PREGABALIN
     Dosage: 600 MG, QD
     Route: 065

REACTIONS (8)
  - Loss of consciousness [Unknown]
  - Drug interaction [Unknown]
  - Fall [Unknown]
  - Product use issue [Unknown]
  - Fracture [Unknown]
  - Salivary hypersecretion [Unknown]
  - Epilepsy [Recovered/Resolved]
  - Antipsychotic drug level increased [Unknown]
